FAERS Safety Report 15713197 (Version 1)
Quarter: 2018Q4

REPORT INFORMATION
  Report Type: Report from Study
  Country: US (occurrence: US)
  Receive Date: 20181212
  Receipt Date: 20181212
  Transmission Date: 20190205
  Serious: Yes (Death, Hospitalization)
  Sender: FDA-Public Use
  Company Number: US-BAYER-2018-209212

PATIENT
  Age: 61 Year
  Sex: Female
  Weight: 92.97 kg

DRUGS (2)
  1. APIXABAN [Concomitant]
     Active Substance: APIXABAN
     Dosage: UNK
  2. ADEMPAS [Suspect]
     Active Substance: RIOCIGUAT
     Indication: PULMONARY ARTERIAL HYPERTENSION
     Dosage: 0.5 MG, TID
     Route: 048
     Dates: start: 20181105

REACTIONS (6)
  - Dyspnoea [None]
  - Vomiting [Unknown]
  - Hypotension [None]
  - Death [Fatal]
  - Nausea [Unknown]
  - Product dose omission [None]

NARRATIVE: CASE EVENT DATE: 201811
